FAERS Safety Report 10157163 (Version 8)
Quarter: 2015Q3

REPORT INFORMATION
  Report Type: Spontaneous
  Country: US (occurrence: US)
  Receive Date: 20140507
  Receipt Date: 20150828
  Transmission Date: 20151125
  Serious: Yes (Other)
  Sender: FDA-Public Use
  Company Number: US-PFIZER INC-2014124220

PATIENT
  Age: 65 Year
  Sex: Female

DRUGS (9)
  1. XANAX [Suspect]
     Active Substance: ALPRAZOLAM
     Dosage: UNK
     Route: 048
     Dates: start: 2014
  2. XANAX [Suspect]
     Active Substance: ALPRAZOLAM
     Indication: PANIC DISORDER
     Dosage: 1 MG, 1X/DAY
     Route: 048
     Dates: start: 1996
  3. XANAX [Suspect]
     Active Substance: ALPRAZOLAM
     Dosage: 4-5 MG 4 TIMES A DAY
     Route: 048
  4. XANAX [Suspect]
     Active Substance: ALPRAZOLAM
     Dosage: UNK
  5. XANAX [Suspect]
     Active Substance: ALPRAZOLAM
     Dosage: UNK
     Dates: start: 2000
  6. ALPRAZOLAM. [Suspect]
     Active Substance: ALPRAZOLAM
     Indication: PANIC DISORDER
     Dosage: 1 MG, UNK
     Route: 048
     Dates: start: 1988
  7. PROPRANOLOL [Concomitant]
     Active Substance: PROPRANOLOL\PROPRANOLOL HYDROCHLORIDE
     Indication: TACHYCARDIA
     Dosage: 20 MG, 3X/DAY
     Dates: start: 2010
  8. XANAX [Suspect]
     Active Substance: ALPRAZOLAM
     Indication: POST-TRAUMATIC STRESS DISORDER
     Dosage: 1 MG, 3X/DAY
     Route: 048
  9. ALPRAZOLAM. [Suspect]
     Active Substance: ALPRAZOLAM
     Dosage: 1 MG, 4X/DAY
     Route: 048

REACTIONS (36)
  - Suicidal ideation [Recovered/Resolved]
  - Brain injury [Not Recovered/Not Resolved]
  - Mental disorder [Recovered/Resolved]
  - Post-traumatic stress disorder [Not Recovered/Not Resolved]
  - Nightmare [Unknown]
  - Activities of daily living impaired [Recovered/Resolved]
  - Crying [Recovered/Resolved]
  - Ear disorder [Not Recovered/Not Resolved]
  - Swelling [Recovered/Resolved]
  - Seizure [Recovered/Resolved]
  - Paraesthesia [Recovered/Resolved]
  - Hyperhidrosis [Unknown]
  - Headache [Recovered/Resolved]
  - Night sweats [Recovered/Resolved]
  - Disturbance in attention [Not Recovered/Not Resolved]
  - Pruritus [Recovered/Resolved]
  - Discomfort [Unknown]
  - Insomnia [Recovered/Resolved]
  - Weight increased [Recovered/Resolved]
  - Breast enlargement [Recovered/Resolved]
  - Skin exfoliation [Not Recovered/Not Resolved]
  - Panic attack [Recovered/Resolved]
  - Mania [Recovered/Resolved]
  - Abdominal distension [Recovered/Resolved]
  - Drug withdrawal syndrome [Recovered/Resolved]
  - Diarrhoea [Recovered/Resolved]
  - Sleep terror [Not Recovered/Not Resolved]
  - Palpitations [Not Recovered/Not Resolved]
  - Oedema [Not Recovered/Not Resolved]
  - General physical health deterioration [Not Recovered/Not Resolved]
  - Tremor [Not Recovered/Not Resolved]
  - Confusional state [Not Recovered/Not Resolved]
  - Tinnitus [Not Recovered/Not Resolved]
  - Counterfeit drug administered [Unknown]
  - Drug dependence [Not Recovered/Not Resolved]
  - Product size issue [Unknown]

NARRATIVE: CASE EVENT DATE: 2015
